FAERS Safety Report 9343253 (Version 2)
Quarter: 2013Q2

REPORT INFORMATION
  Report Type: Spontaneous
  Country: FR (occurrence: FR)
  Receive Date: 20130611
  Receipt Date: 20130621
  Transmission Date: 20140414
  Serious: Yes (Hospitalization)
  Sender: FDA-Public Use
  Company Number: FR-US-EMD SERONO, INC.-230050M09FRA

PATIENT
  Age: 65 Year
  Sex: Male
  Weight: 84 kg

DRUGS (3)
  1. REBIF [Suspect]
     Indication: RELAPSING-REMITTING MULTIPLE SCLEROSIS
     Route: 058
     Dates: start: 200806, end: 20090923
  2. LIORESAL [Concomitant]
     Indication: MULTIPLE SCLEROSIS
     Route: 048
  3. TAHOR [Concomitant]
     Indication: DYSLIPIDAEMIA
     Route: 048

REACTIONS (2)
  - Hypertension [Recovered/Resolved]
  - Haemolytic uraemic syndrome [Recovered/Resolved]
